FAERS Safety Report 16310591 (Version 3)
Quarter: 2020Q4

REPORT INFORMATION
  Report Type: Spontaneous
  Country: US (occurrence: US)
  Receive Date: 20190514
  Receipt Date: 20201204
  Transmission Date: 20210113
  Serious: Yes (Death, Hospitalization, Other)
  Sender: FDA-Public Use
  Company Number: US-ASTRAZENECA-2019SE67556

PATIENT
  Age: 17376 Day
  Sex: Female
  Weight: 91.6 kg

DRUGS (50)
  1. PRILOSEC OTC [Suspect]
     Active Substance: OMEPRAZOLE MAGNESIUM
     Route: 048
     Dates: start: 2000
  2. LISINOPRIL. [Concomitant]
     Active Substance: LISINOPRIL
  3. INSULIN [Concomitant]
     Active Substance: INSULIN NOS
  4. VICTOZA [Concomitant]
     Active Substance: LIRAGLUTIDE
  5. LOSARTAN. [Concomitant]
     Active Substance: LOSARTAN
  6. CARBOXYMETHYLCELLULOSE/GLYCERIN [Concomitant]
  7. PANTOPRAZOLE [Suspect]
     Active Substance: PANTOPRAZOLE
     Indication: BARRETT^S OESOPHAGUS
     Route: 065
     Dates: start: 20150905, end: 20160921
  8. PREVACID [Suspect]
     Active Substance: LANSOPRAZOLE
     Indication: BARRETT^S OESOPHAGUS
     Route: 065
     Dates: start: 199801, end: 201607
  9. METOPROLOL. [Concomitant]
     Active Substance: METOPROLOL
  10. CALCIUM ACETATE. [Concomitant]
     Active Substance: CALCIUM ACETATE
  11. VITAMIN D3 [Concomitant]
     Active Substance: CHOLECALCIFEROL
  12. ERGOCALCIFEROL. [Concomitant]
     Active Substance: ERGOCALCIFEROL
  13. PRILOSEC [Suspect]
     Active Substance: OMEPRAZOLE MAGNESIUM
     Indication: BARRETT^S OESOPHAGUS
     Route: 048
     Dates: start: 199801, end: 201607
  14. LANTUS [Concomitant]
     Active Substance: INSULIN GLARGINE
     Indication: DIABETES MELLITUS
     Dates: start: 20121121
  15. LASIX [Concomitant]
     Active Substance: FUROSEMIDE
     Indication: NEPHROPATHY
     Dates: start: 20121121
  16. ONDANSETRON [Concomitant]
     Active Substance: ONDANSETRON
  17. KLOR-CON [Concomitant]
     Active Substance: POTASSIUM CHLORIDE
  18. ECOTRIN [Concomitant]
     Active Substance: ASPIRIN
  19. NEPHROCAPS [Concomitant]
     Active Substance: ASCORBIC ACID\BIOTIN\CYANOCOBALAMIN\FOLIC ACID\NIACIN\PANTOTHENIC ACID\PYRIDOXINE\RIBOFLAVIN\THIAMINE
  20. COLACE [Concomitant]
     Active Substance: DOCUSATE SODIUM
  21. NOVOLIN NOS [Concomitant]
     Active Substance: INSULIN HUMAN
     Indication: DIABETES MELLITUS
     Dates: start: 20121121
  22. ZANTAC [Concomitant]
     Active Substance: RANITIDINE HYDROCHLORIDE
     Dosage: OTC 150
  23. AMOXICILLIN. [Concomitant]
     Active Substance: AMOXICILLIN
  24. GENTAMICIN. [Concomitant]
     Active Substance: GENTAMICIN
  25. SODIUM BICARBONATE. [Concomitant]
     Active Substance: SODIUM BICARBONATE
  26. PRILOSEC [Suspect]
     Active Substance: OMEPRAZOLE MAGNESIUM
     Indication: BARRETT^S OESOPHAGUS
     Route: 048
  27. PEPTO-BISMOL [Concomitant]
     Active Substance: BISMUTH SUBSALICYLATE
  28. TUMS [Concomitant]
     Active Substance: CALCIUM CARBONATE
  29. DIAZEPAM. [Concomitant]
     Active Substance: DIAZEPAM
  30. MAG OXIDE [Concomitant]
     Active Substance: MAGNESIUM OXIDE
  31. UREA. [Concomitant]
     Active Substance: UREA
  32. SIMVASTATIN. [Concomitant]
     Active Substance: SIMVASTATIN
     Indication: BLOOD CHOLESTEROL INCREASED
     Dates: start: 20121121
  33. ZANTAC [Concomitant]
     Active Substance: RANITIDINE HYDROCHLORIDE
     Dosage: OTC 75
  34. METOCLOPRAMIDE. [Concomitant]
     Active Substance: METOCLOPRAMIDE
  35. HYDROCODONE/ACETAMINOPHEN [Concomitant]
     Active Substance: ACETAMINOPHEN\HYDROCODONE
  36. PREVACID 24 HR [Suspect]
     Active Substance: LANSOPRAZOLE
     Route: 065
     Dates: start: 199801, end: 201607
  37. MILK OF MAGNESIA [Concomitant]
     Active Substance: MAGNESIUM HYDROXIDE
  38. METFORMIN [Concomitant]
     Active Substance: METFORMIN HYDROCHLORIDE
  39. IBUPROFEN. [Concomitant]
     Active Substance: IBUPROFEN
  40. CARVEDILOL. [Concomitant]
     Active Substance: CARVEDILOL
  41. LIDOCAINE-PRILOCAINE [Concomitant]
     Active Substance: LIDOCAINE\PRILOCAINE
  42. MIRALAX [Concomitant]
     Active Substance: POLYETHYLENE GLYCOL 3350
  43. PRILOSEC [Suspect]
     Active Substance: OMEPRAZOLE MAGNESIUM
     Indication: BARRETT^S OESOPHAGUS
     Route: 065
     Dates: start: 20120507, end: 20151228
  44. PREVACID [Suspect]
     Active Substance: LANSOPRAZOLE
     Indication: BARRETT^S OESOPHAGUS
     Route: 065
     Dates: start: 1998
  45. CLONIDINE. [Concomitant]
     Active Substance: CLONIDINE
     Indication: HYPERTENSION
     Dates: start: 20121121
  46. NIFEDIPINE. [Concomitant]
     Active Substance: NIFEDIPINE
  47. ZOLPIDEM [Concomitant]
     Active Substance: ZOLPIDEM TARTRATE
  48. AZITHROMYCIN ANHYDROUS. [Concomitant]
     Active Substance: AZITHROMYCIN ANHYDROUS
  49. ROCALTROL [Concomitant]
     Active Substance: CALCITRIOL
  50. DEXTRAN [Concomitant]
     Active Substance: DEXTRAN

REACTIONS (9)
  - Hyperparathyroidism secondary [Unknown]
  - Cardiac arrest [Fatal]
  - Nephrogenic anaemia [Unknown]
  - Chronic kidney disease [Unknown]
  - End stage renal disease [Unknown]
  - Acute kidney injury [Unknown]
  - Skin ulcer [Fatal]
  - Renal failure [Unknown]
  - Chronic kidney disease-mineral and bone disorder [Unknown]

NARRATIVE: CASE EVENT DATE: 20120322
